FAERS Safety Report 7522225-9 (Version None)
Quarter: 2011Q2

REPORT INFORMATION
  Report Type: 
  Country: None (occurrence: None)
  Receive Date: 20110603
  Receipt Date: 20110526
  Transmission Date: 20111010
  Serious: Yes (Hospitalization, Congenital Anomaly, Other)
  Sender: FDA-Public Use
  Company Number: DE-PFIZER INC-2011116115

PATIENT
  Age: 26 Year
  Sex: Female
  Weight: 64 kg

DRUGS (10)
  1. PREDNISOLONE [Suspect]
     Dosage: 20 MG, 1X/DAY, GW 20 - 22
     Route: 064
  2. VOLTAREN [Suspect]
     Indication: RHEUMATOID ARTHRITIS
     Dosage: 140 MG, 2X/DAY, 190 DAYS FROM GESTATIONAL WEEK 0-27
     Route: 048
  3. PREDNISOLONE [Suspect]
     Dosage: 15 MG, 1X/DAY, GW 27 - 35
     Route: 064
  4. IBUPROFEN [Suspect]
     Indication: RHEUMATOID ARTHRITIS
     Dosage: 600 MG, FREQUENCY UNKNOWN, FOR 43 DAYS FROM GW 16 TO 22
     Route: 048
  5. PREDNISOLONE [Suspect]
     Indication: RHEUMATOID ARTHRITIS
     Dosage: 5 MG, 1X/DAY, FROM GW 0-14
     Route: 048
  6. PREDNISOLONE [Suspect]
     Dosage: 10 MG, 1X/DAY, FROM GW 14 - 16
     Route: 064
  7. FOLIC ACID [Concomitant]
     Dosage: UNK AT GESTATIONAL WEEK 0-33.5
     Route: 048
     Dates: start: 20081115, end: 20090815
  8. PREDNISOLONE [Suspect]
     Dosage: 15 MG, 1X/DAY, GW 16 - 20
     Route: 064
  9. HUMIRA [Concomitant]
     Indication: RHEUMATOID ARTHRITIS
     Dosage: 40 MG, FREQUENCY UNK, PRECONCEPTIONAL
     Route: 058
  10. PARACETAMOL [Concomitant]
     Dosage: 1500 UP TO 3000 MG/DAY FROM GESTATIONAL WEEK 27 TO 35
     Route: 048

REACTIONS (3)
  - DRUG EXPOSURE DURING PREGNANCY [None]
  - PREMATURE DELIVERY [None]
  - OLIGOHYDRAMNIOS [None]
